FAERS Safety Report 9029046 (Version 1)
Quarter: 2013Q1

REPORT INFORMATION
  Report Type: Spontaneous
  Country: IT (occurrence: IT)
  Receive Date: 20130122
  Receipt Date: 20130122
  Transmission Date: 20140127
  Serious: Yes (Other)
  Sender: FDA-Public Use
  Company Number: IT-ROCHE-1179076

PATIENT
  Age: 43 Year
  Sex: Female

DRUGS (1)
  1. BEVACIZUMAB [Suspect]
     Indication: OLIGODENDROGLIOMA
     Route: 065
     Dates: start: 201109

REACTIONS (1)
  - Psoriatic arthropathy [Unknown]
